FAERS Safety Report 7179274-2 (Version None)
Quarter: 2010Q4

REPORT INFORMATION
  Report Type: 
  Country: None (occurrence: None)
  Receive Date: 20101221
  Receipt Date: 20101213
  Transmission Date: 20110411
  Serious: No
  Sender: FDA-Public Use
  Company Number: US-JNJFOC-20101205295

PATIENT
  Sex: Male
  Weight: 92.53 kg

DRUGS (11)
  1. FENTANYL-100 [Suspect]
     Indication: RADICULAR PAIN
     Route: 062
  2. SOMA [Concomitant]
     Indication: MUSCLE RELAXANT THERAPY
     Route: 048
  3. LIPITOR [Concomitant]
     Indication: BLOOD CHOLESTEROL INCREASED
     Dosage: 60 MG/TABLET/80MG
     Route: 048
  4. TOPROL-XL [Concomitant]
     Indication: BLOOD CHOLESTEROL INCREASED
     Route: 048
  5. ZOLOFT [Concomitant]
     Indication: DEPRESSION
     Route: 048
  6. DICLOFENAC [Concomitant]
     Indication: ILL-DEFINED DISORDER
     Route: 048
  7. EXFORGE [Concomitant]
     Indication: BLOOD PRESSURE
     Dosage: 10/320/DAILY
     Route: 048
  8. PROVENTIL GENTLEHALER [Concomitant]
     Indication: CHRONIC OBSTRUCTIVE PULMONARY DISEASE
     Route: 055
  9. PROTONIX [Concomitant]
     Indication: GASTROOESOPHAGEAL REFLUX DISEASE
     Route: 048
  10. ZANTAC [Concomitant]
     Indication: GASTRIC DISORDER
     Route: 048
  11. HYDROCODONE [Concomitant]
     Indication: BREAKTHROUGH PAIN
     Dosage: 10/50/AS NEEDED
     Route: 048

REACTIONS (4)
  - DRUG INEFFECTIVE [None]
  - PRODUCT ADHESION ISSUE [None]
  - WITHDRAWAL SYNDROME [None]
  - WRONG TECHNIQUE IN DRUG USAGE PROCESS [None]
